FAERS Safety Report 6099522-X (Version None)
Quarter: 2009Q1

REPORT INFORMATION
  Report Type: 
  Country: None (occurrence: None)
  Receive Date: 20090303
  Receipt Date: 20090220
  Transmission Date: 20090719
  Serious: Yes (Hospitalization)
  Sender: FDA-Public Use
  Company Number: JP-BIOGENIDEC-2009BI005985

PATIENT
  Age: 67 Year
  Sex: Female

DRUGS (9)
  1. AVONEX [Suspect]
     Indication: MULTIPLE SCLEROSIS
     Route: 030
     Dates: start: 20080207, end: 20090122
  2. SELBEX [Concomitant]
     Indication: DRUG USE FOR UNKNOWN INDICATION
  3. MYSLEE [Concomitant]
     Indication: DRUG USE FOR UNKNOWN INDICATION
  4. TAKEPRON [Concomitant]
     Indication: DRUG USE FOR UNKNOWN INDICATION
  5. HUKUNALIN [Concomitant]
     Indication: DRUG USE FOR UNKNOWN INDICATION
  6. THEO-DUR [Concomitant]
     Indication: DRUG USE FOR UNKNOWN INDICATION
  7. ONON [Concomitant]
     Indication: DRUG USE FOR UNKNOWN INDICATION
  8. CINAL [Concomitant]
     Indication: DRUG USE FOR UNKNOWN INDICATION
  9. GASCON [Concomitant]
     Indication: DRUG USE FOR UNKNOWN INDICATION

REACTIONS (2)
  - PNEUMONIA [None]
  - PYREXIA [None]
